FAERS Safety Report 15725434 (Version 4)
Quarter: 2020Q2

REPORT INFORMATION
  Report Type: Report from Study
  Country: US (occurrence: US)
  Receive Date: 20181215
  Receipt Date: 20200409
  Transmission Date: 20200713
  Serious: No
  Sender: FDA-Public Use
  Company Number: PHEH2018US051905

PATIENT
  Sex: Female

DRUGS (1)
  1. GILENYA [Suspect]
     Active Substance: FINGOLIMOD HYDROCHLORIDE
     Indication: MULTIPLE SCLEROSIS
     Dosage: 0.5 MG, QD
     Route: 048
     Dates: start: 20180522

REACTIONS (4)
  - Dysphonia [Recovering/Resolving]
  - Nasopharyngitis [Recovering/Resolving]
  - Headache [Recovered/Resolved]
  - Sinusitis [Recovering/Resolving]
